FAERS Safety Report 5216568-1 (Version None)
Quarter: 2007Q1

REPORT INFORMATION
  Report Type: 
  Country: None (occurrence: None)
  Receive Date: 20070118
  Receipt Date: 20070110
  Transmission Date: 20070707
  Serious: Yes (Disabling)
  Sender: FDA-Public Use
  Company Number: 6028998

PATIENT
  Age: 1 Hour
  Sex: Male
  Weight: 3.57 kg

DRUGS (3)
  1. LEVOTHYROX [Suspect]
     Dosage: 150 MCG (150 MCG,1 D)
     Route: 064
  2. LODOZ (TABLET) (HYDROCHLOROTHIAZIDE, BISOPROLOL FUMARATE) [Suspect]
     Indication: DRUG EXPOSURE DURING PREGNANCY
     Dosage: 1 DOSAGE FORMS (1 DOSAGE FORMS,1 D)
     Route: 064
  3. COTAREG (TABLET) (HYDROCHLOROTHIAZIDE, VALSARTAN) [Suspect]
     Indication: DRUG EXPOSURE DURING PREGNANCY
     Dosage: 1 DOSAGE FORMS (1 DOSAGE FORMS,1 D)
     Route: 064

REACTIONS (21)
  - CAESAREAN SECTION [None]
  - CARDIAC FAILURE [None]
  - DELAYED CLOSURE OF CRANIAL SUTURES [None]
  - DRUG EXPOSURE DURING PREGNANCY [None]
  - DYSMORPHISM [None]
  - ECHOGRAPHY ABNORMAL [None]
  - HYPOTONIA NEONATAL [None]
  - MALIGNANT HYPERTENSION [None]
  - MULTIPLE CONGENITAL ABNORMALITIES [None]
  - MUSCULOSKELETAL STIFFNESS [None]
  - NEONATAL RESPIRATORY ACIDOSIS [None]
  - NEONATAL RESPIRATORY DISTRESS SYNDROME [None]
  - OLIGOHYDRAMNIOS [None]
  - PERITONEAL DIALYSIS [None]
  - PNEUMOTHORAX [None]
  - PULMONARY HYPOPLASIA [None]
  - RENAL DISORDER [None]
  - RENAL FAILURE CHRONIC [None]
  - RENAL FAILURE NEONATAL [None]
  - RESPIRATORY DISTRESS [None]
  - SPINAL X-RAY ABNORMAL [None]
